FAERS Safety Report 8133483 (Version 4)
Quarter: 2013Q3

REPORT INFORMATION
  Report Type: Report from Study
  Country: US (occurrence: US)
  Receive Date: 20110913
  Receipt Date: 20130828
  Transmission Date: 20140515
  Serious: Yes (Hospitalization)
  Sender: FDA-Public Use
  Company Number: US-GENZYME-THYM-1002742

PATIENT
  Age: 48 Year
  Sex: Male
  Weight: 92 kg

DRUGS (1)
  1. THYMOGLOBULIN [Suspect]
     Indication: BONE MARROW CONDITIONING REGIMEN
     Dosage: 2.5 MG/KG, QD
     Route: 042
     Dates: start: 20110712, end: 20110714

REACTIONS (4)
  - Delayed engraftment [Recovered/Resolved]
  - Pyrexia [Recovered/Resolved]
  - Bacterial sepsis [Recovered/Resolved]
  - Enterococcal sepsis [Recovered/Resolved]
